FAERS Safety Report 20198388 (Version 2)
Quarter: 2022Q1

REPORT INFORMATION
  Report Type: Spontaneous
  Country: CN (occurrence: CN)
  Receive Date: 20211217
  Receipt Date: 20220117
  Transmission Date: 20220424
  Serious: Yes (Hospitalization, Other)
  Sender: FDA-Public Use
  Company Number: CN-SA-SAC20211216000380

PATIENT
  Age: 73 Year
  Sex: Female
  Weight: 55 kg

DRUGS (6)
  1. CAPECITABINE [Suspect]
     Active Substance: CAPECITABINE
     Indication: Neoplasm malignant
     Dosage: 1500MG, BID
     Route: 048
     Dates: start: 20210429, end: 20210505
  2. APATINIB [Suspect]
     Active Substance: APATINIB
     Indication: Neoplasm malignant
     Dosage: 2500MG, QD
     Route: 048
     Dates: start: 20210429, end: 20210505
  3. ELOXATIN [Suspect]
     Active Substance: OXALIPLATIN
     Indication: Neoplasm malignant
     Dosage: 1X(ONCE)
     Route: 041
     Dates: start: 20210429, end: 20210429
  4. FLUOROURACIL [Suspect]
     Active Substance: FLUOROURACIL
     Indication: Neoplasm malignant
     Dosage: 1X(ONCE)
     Dates: start: 20210429, end: 20210429
  5. UBENIMEX [Concomitant]
     Active Substance: UBENIMEX
     Route: 048
     Dates: start: 20210429, end: 20210505
  6. ONDANSETRON HYDROCHLORIDE [Concomitant]
     Active Substance: ONDANSETRON HYDROCHLORIDE
     Indication: Vomiting
     Route: 048
     Dates: start: 20210429, end: 20210505

REACTIONS (1)
  - Myelosuppression [Recovering/Resolving]

NARRATIVE: CASE EVENT DATE: 20210520
